FAERS Safety Report 17758690 (Version 2)
Quarter: 2020Q3

REPORT INFORMATION
  Report Type: Report from Study
  Country: None (occurrence: US)
  Receive Date: 20200508
  Receipt Date: 20200813
  Transmission Date: 20201102
  Serious: No
  Sender: FDA-Public Use
  Company Number: US-ABBVIE-20K-163-3394427-00

PATIENT
  Age: 13 Year
  Sex: Male

DRUGS (3)
  1. LUPRON [Suspect]
     Active Substance: LEUPROLIDE ACETATE
     Route: 030
     Dates: start: 2020
  2. LUPRON [Suspect]
     Active Substance: LEUPROLIDE ACETATE
     Route: 030
     Dates: start: 201907, end: 2020
  3. LUPRON [Suspect]
     Active Substance: LEUPROLIDE ACETATE
     Indication: PRECOCIOUS PUBERTY
     Route: 030
     Dates: start: 201901, end: 2019

REACTIONS (9)
  - Infectious mononucleosis [Recovered/Resolved]
  - Abdominal pain [Recovered/Resolved]
  - Pharyngitis streptococcal [Recovered/Resolved]
  - Inflammatory bowel disease [Recovering/Resolving]
  - Adverse drug reaction [Recovered/Resolved]
  - Clostridium difficile infection [Recovered/Resolved]
  - Arthralgia [Recovered/Resolved]
  - Nausea [Recovered/Resolved]
  - Colitis [Recovered/Resolved]

NARRATIVE: CASE EVENT DATE: 201912
